FAERS Safety Report 9950969 (Version 1)
Quarter: 2014Q1

REPORT INFORMATION
  Report Type: Spontaneous
  Country: DE (occurrence: DE)
  Receive Date: 20140304
  Receipt Date: 20140304
  Transmission Date: 20141002
  Serious: Yes (Life-Threatening, Hospitalization)
  Sender: FDA-Public Use
  Company Number: DE-SA-2014SA023336

PATIENT
  Age: 59 Year
  Sex: Male

DRUGS (7)
  1. ARAVA [Suspect]
     Indication: RHEUMATOID ARTHRITIS
     Dates: start: 201206, end: 201401
  2. CANDESARTAN [Concomitant]
     Indication: HYPERTENSION
  3. LERCANIDIPINE [Concomitant]
     Indication: HYPERTENSION
  4. MOXONIDINE [Concomitant]
     Indication: HYPERTENSION
  5. ALISKIREN [Concomitant]
     Indication: HYPERTENSION
  6. MINOXIDIL [Concomitant]
     Indication: HYPERTENSION
  7. OPIPRAMOL [Concomitant]
     Indication: HYPERTENSION

REACTIONS (1)
  - Drug-induced liver injury [Recovering/Resolving]
